FAERS Safety Report 18857153 (Version 2)
Quarter: 2021Q1

REPORT INFORMATION
  Report Type: Spontaneous
  Country: GB (occurrence: GB)
  Receive Date: 20210208
  Receipt Date: 20210218
  Transmission Date: 20210420
  Serious: Yes (Other)
  Sender: FDA-Public Use
  Company Number: GB-OCTA-GAM02121GB

PATIENT
  Age: 35 Year
  Sex: Female

DRUGS (1)
  1. OCTAGAM IMMUNE GLOBULIN (HUMAN) [Suspect]
     Active Substance: HUMAN IMMUNOGLOBULIN G
     Indication: MYASTHENIA GRAVIS
     Route: 042
     Dates: start: 20201126, end: 20201130

REACTIONS (2)
  - Suspected transmission of an infectious agent via product [Not Recovered/Not Resolved]
  - Chronic hepatitis C [Not Recovered/Not Resolved]

NARRATIVE: CASE EVENT DATE: 20210110
